FAERS Safety Report 16724741 (Version 1)
Quarter: 2019Q3

REPORT INFORMATION
  Report Type: Spontaneous
  Country: US (occurrence: US)
  Receive Date: 20190821
  Receipt Date: 20190821
  Transmission Date: 20191005
  Serious: Yes (Hospitalization)
  Sender: FDA-Public Use
  Company Number: PHHY2019US191722

PATIENT
  Age: 74 Year
  Sex: Male

DRUGS (2)
  1. DABRAFENIB [Suspect]
     Active Substance: DABRAFENIB
     Indication: HAIRY CELL LEUKAEMIA
     Dosage: UNK
     Route: 065
  2. TRAMETINIB [Suspect]
     Active Substance: TRAMETINIB
     Indication: HAIRY CELL LEUKAEMIA
     Dosage: UNK
     Route: 065

REACTIONS (10)
  - Haemoglobinuria [Recovered/Resolved]
  - Fatigue [Recovered/Resolved]
  - Normocytic anaemia [Recovered/Resolved]
  - Pallor [Recovered/Resolved]
  - Autoimmune haemolytic anaemia [Recovered/Resolved]
  - Chromaturia [Recovered/Resolved]
  - Dyspnoea [Recovered/Resolved]
  - Dizziness [Recovered/Resolved]
  - Haemolysis [Recovered/Resolved]
  - Product use in unapproved indication [Unknown]
